FAERS Safety Report 17918474 (Version 1)
Quarter: 2020Q2

REPORT INFORMATION
  Report Type: Spontaneous
  Country: US (occurrence: US)
  Receive Date: 20200619
  Receipt Date: 20200619
  Transmission Date: 20200714
  Serious: Yes (Other)
  Sender: FDA-Public Use
  Company Number: US-ASTRAZENECA-2020SE76242

PATIENT
  Age: 793 Month
  Sex: Male
  Weight: 95.3 kg

DRUGS (4)
  1. LYNPARZA [Suspect]
     Active Substance: OLAPARIB
     Indication: OESOPHAGEAL CARCINOMA
     Route: 048
     Dates: start: 20200506
  2. COMPAZINE [Concomitant]
     Active Substance: PROCHLORPERAZINE MALEATE
     Indication: NAUSEA
     Dosage: AS REQUIRED
     Route: 048
     Dates: start: 202005
  3. ZOFRAN [Concomitant]
     Active Substance: ONDANSETRON HYDROCHLORIDE
     Indication: NAUSEA
     Dosage: AS REQUIRED
     Route: 048
     Dates: start: 202005
  4. HYDROCODONE [Concomitant]
     Active Substance: HYDROCODONE
     Indication: CANCER PAIN
     Route: 048

REACTIONS (6)
  - Rash erythematous [Not Recovered/Not Resolved]
  - Nausea [Unknown]
  - Product use in unapproved indication [Unknown]
  - Dysphonia [Not Recovered/Not Resolved]
  - Myalgia [Unknown]
  - Abdominal pain upper [Not Recovered/Not Resolved]

NARRATIVE: CASE EVENT DATE: 202005
